FAERS Safety Report 14499128 (Version 1)
Quarter: 2018Q1

REPORT INFORMATION
  Report Type: Spontaneous
  Country: FR (occurrence: FR)
  Receive Date: 20180207
  Receipt Date: 20180207
  Transmission Date: 20180509
  Serious: Yes (Hospitalization, Other)
  Sender: FDA-Public Use
  Company Number: FR-JAZZ-2017-FR-008099

PATIENT
  Age: 79 Year
  Sex: Female
  Weight: 51.5 kg

DRUGS (5)
  1. NAROPEINE [Suspect]
     Active Substance: ROPIVACAINE HYDROCHLORIDE
     Indication: PAIN
     Dosage: 0.6 MG UP TO 8 BOLUS, QD
     Route: 037
     Dates: start: 20160412
  2. DAFLON /00426001/ [Concomitant]
     Active Substance: DIOSMIN
     Indication: PRODUCT USED FOR UNKNOWN INDICATION
     Dosage: 2 DOSAGE FORMS (1 DOSAGE FORMS,2 IN 1 D)
     Route: 048
     Dates: end: 20160724
  3. MORPHINE [Suspect]
     Active Substance: MORPHINE
     Dosage: 0.3 MG UP TO 5 BOLUS, QD
     Route: 037
     Dates: start: 20160726
  4. PRIALT [Suspect]
     Active Substance: ZICONOTIDE ACETATE
     Indication: PAIN
     Dosage: 0.2 ?G UP TO 8 BOLUS, QD
     Route: 037
     Dates: start: 20160412
  5. MORPHINE [Suspect]
     Active Substance: MORPHINE
     Indication: PAIN
     Dosage: 0.3 MG UP TO 8 BOLUS, QD
     Route: 037
     Dates: start: 20160412, end: 20160726

REACTIONS (4)
  - Confusional state [Recovered/Resolved]
  - Constipation [Recovered/Resolved]
  - Off label use [Unknown]
  - Delirium [Recovered/Resolved]

NARRATIVE: CASE EVENT DATE: 20160412
